FAERS Safety Report 11342423 (Version 1)
Quarter: 2015Q3

REPORT INFORMATION
  Report Type: Spontaneous
  Country: DK (occurrence: DK)
  Receive Date: 20150805
  Receipt Date: 20150805
  Transmission Date: 20151125
  Serious: Yes (Hospitalization)
  Sender: FDA-Public Use
  Company Number: PHHY2015DK090995

PATIENT
  Age: 60 Year
  Sex: Female

DRUGS (3)
  1. BIOCLAVID [Suspect]
     Active Substance: AMOXICILLIN\CLAVULANIC ACID
     Indication: PERIODONTITIS
     Dosage: STRENGTH: 500 MG + 125 MG
     Route: 048
     Dates: start: 20150611, end: 20150621
  2. COENZYME Q10 [Concomitant]
     Active Substance: UBIDECARENONE
     Indication: SUPPLEMENTATION THERAPY
     Route: 065
     Dates: end: 20150717
  3. A-C-D-VITAMIN [Concomitant]
     Indication: SUPPLEMENTATION THERAPY
     Route: 065
     Dates: end: 20150717

REACTIONS (11)
  - Fatigue [Unknown]
  - Weight decreased [Unknown]
  - Vomiting [Recovered/Resolved]
  - Jaundice [Unknown]
  - Pruritus [Unknown]
  - Chromaturia [Unknown]
  - Food aversion [Unknown]
  - Nausea [Unknown]
  - Drug-induced liver injury [Recovering/Resolving]
  - Faeces pale [Unknown]
  - Cholestasis [Unknown]

NARRATIVE: CASE EVENT DATE: 201507
